FAERS Safety Report 24225693 (Version 1)
Quarter: 2024Q3

REPORT INFORMATION
  Report Type: Spontaneous
  Country: US (occurrence: US)
  Receive Date: 20240820
  Receipt Date: 20240820
  Transmission Date: 20241017
  Serious: No
  Sender: GLAXOSMITHKLINE
  Company Number: US-GSKCCFUS-Case-02073987_AE-114713

PATIENT
  Sex: Female

DRUGS (2)
  1. ADVAIR HFA [Suspect]
     Active Substance: FLUTICASONE PROPIONATE\SALMETEROL XINAFOATE
     Indication: Product used for unknown indication
     Dosage: UNK
  2. SALMETEROL [Suspect]
     Active Substance: SALMETEROL
     Indication: Product used for unknown indication
     Dosage: UNK

REACTIONS (2)
  - Ill-defined disorder [Unknown]
  - Bronchial irritation [Unknown]
